FAERS Safety Report 11584585 (Version 2)
Quarter: 2016Q1

REPORT INFORMATION
  Report Type: Report from Study
  Country: GB (occurrence: GB)
  Receive Date: 20151001
  Receipt Date: 20160209
  Transmission Date: 20160525
  Serious: Yes (Hospitalization, Other)
  Sender: FDA-Public Use
  Company Number: GB-AMGEN-GBRSL2015101183

PATIENT
  Age: 78 Year
  Sex: Male

DRUGS (1)
  1. ARANESP [Suspect]
     Active Substance: DARBEPOETIN ALFA
     Indication: PRODUCT USED FOR UNKNOWN INDICATION
     Dosage: 30 MUG, UNK
     Route: 065

REACTIONS (4)
  - Pneumonia [Unknown]
  - Dehydration [Unknown]
  - Malaise [Recovered/Resolved]
  - Incoherent [Unknown]

NARRATIVE: CASE EVENT DATE: 201509
